FAERS Safety Report 10121369 (Version 2)
Quarter: 2014Q2

REPORT INFORMATION
  Report Type: Report from Study
  Country: HU (occurrence: HU)
  Receive Date: 20140425
  Receipt Date: 20140425
  Transmission Date: 20141212
  Serious: Yes (Death, Hospitalization, Other)
  Sender: FDA-Public Use
  Company Number: HU-ABBVIE-14K-076-1217805-00

PATIENT
  Age: 6 Month
  Sex: Male

DRUGS (1)
  1. SYNAGIS [Suspect]
     Indication: ANTIVIRAL PROPHYLAXIS
     Dosage: SYNAGIS WAS GIVEN BASED ON BODY WEIGHT
     Route: 030
     Dates: start: 20131205, end: 20140226

REACTIONS (4)
  - Sepsis [Fatal]
  - Rotavirus infection [Unknown]
  - Nasopharyngitis [Fatal]
  - Upper respiratory tract infection [Fatal]
